FAERS Safety Report 10470697 (Version 2)
Quarter: 2014Q3

REPORT INFORMATION
  Report Type: Spontaneous
  Country: US (occurrence: US)
  Receive Date: 20140923
  Receipt Date: 20140923
  Transmission Date: 20150326
  Serious: Yes (Death, Hospitalization)
  Sender: FDA-Public Use
  Company Number: US-GLAXOSMITHKLINE-A0871254A

PATIENT
  Sex: Female

DRUGS (1)
  1. AVANDIA [Suspect]
     Active Substance: ROSIGLITAZONE MALEATE
     Indication: DIABETES MELLITUS
     Dosage: 4MG PER DAY
     Route: 048
     Dates: start: 20040403, end: 20090429

REACTIONS (5)
  - Liver injury [Unknown]
  - Chronic hepatic failure [Unknown]
  - Non-alcoholic steatohepatitis [Unknown]
  - Hepatic cirrhosis [Unknown]
  - Death [Fatal]
